FAERS Safety Report 22803091 (Version 2)
Quarter: 2024Q4

REPORT INFORMATION
  Report Type: Report from Study
  Country: US (occurrence: US)
  Receive Date: 20230809
  Receipt Date: 20241015
  Transmission Date: 20250114
  Serious: Yes (Other)
  Sender: ACCORD
  Company Number: US-Accord-371595

PATIENT
  Age: 33 Year
  Sex: Female

DRUGS (1)
  1. CLOZAPINE [Suspect]
     Active Substance: CLOZAPINE
     Indication: Product used for unknown indication

REACTIONS (4)
  - Neutropenia [Recovered/Resolved]
  - Imprisonment [Unknown]
  - Therapy interrupted [Unknown]
  - Physical assault [Unknown]

NARRATIVE: CASE EVENT DATE: 20230727
